FAERS Safety Report 9933539 (Version 2)
Quarter: 2014Q1

REPORT INFORMATION
  Report Type: Report from Study
  Country: US (occurrence: US)
  Receive Date: 20140228
  Receipt Date: 20140228
  Transmission Date: 20141002
  Serious: No
  Sender: FDA-Public Use
  Company Number: US-MYLANLABS-2013S1023190

PATIENT
  Sex: Female

DRUGS (4)
  1. CLARAVIS [Suspect]
     Indication: ACNE
  2. CLARAVIS [Suspect]
     Indication: ACNE
  3. AMNESTEEM CAPSULES [Suspect]
     Indication: ACNE
     Route: 048
     Dates: end: 20131005
  4. YAZ [Concomitant]
     Indication: CONTRACEPTION

REACTIONS (2)
  - Emotional disorder [Not Recovered/Not Resolved]
  - Reproductive tract disorder [Not Recovered/Not Resolved]
